FAERS Safety Report 12512789 (Version 1)
Quarter: 2016Q2

REPORT INFORMATION
  Report Type: Spontaneous
  Country: BR (occurrence: BR)
  Receive Date: 20160630
  Receipt Date: 20160630
  Transmission Date: 20160815
  Serious: Yes (Other)
  Sender: FDA-Public Use
  Company Number: BR-ROCHE-1784986

PATIENT
  Age: 58 Year
  Sex: Female

DRUGS (26)
  1. MABTHERA [Suspect]
     Active Substance: RITUXIMAB
     Route: 065
     Dates: start: 20160617
  2. PARACETAMOL [Concomitant]
     Active Substance: ACETAMINOPHEN
     Route: 065
  3. SALINE [Concomitant]
     Active Substance: SODIUM CHLORIDE
     Route: 065
  4. AMITRIPTYLINE [Concomitant]
     Active Substance: AMITRIPTYLINE
     Route: 065
  5. DIAZEPAM. [Concomitant]
     Active Substance: DIAZEPAM
     Route: 065
  6. MAGALDRATE [Concomitant]
     Active Substance: MAGALDRATE
     Dosage: SUSPENSION JELLY (BOTTLE OF 240 MI)
     Route: 065
  7. RANITIDINE HYDROCHLORIDE. [Concomitant]
     Active Substance: RANITIDINE HYDROCHLORIDE
     Dosage: AMPOULE 2 ML WITH 50 MG
     Route: 065
  8. MABTHERA [Suspect]
     Active Substance: RITUXIMAB
     Indication: NON-HODGKIN^S LYMPHOMA
     Route: 065
     Dates: start: 20160517
  9. ONDANSETRON HYDROCHLORIDE. [Concomitant]
     Active Substance: ONDANSETRON HYDROCHLORIDE
     Dosage: AMPOULE 4 ML WITH 8 MG
     Route: 065
  10. DIMENHYDRINATE. [Concomitant]
     Active Substance: DIMENHYDRINATE
     Dosage: AMPOULE 10 ML WITH 30 MG INTRAVENOUS
     Route: 042
  11. DEXAMETHASONE. [Concomitant]
     Active Substance: DEXAMETHASONE
     Indication: NON-HODGKIN^S LYMPHOMA
  12. CYCLOPHOSPHAMIDE. [Concomitant]
     Active Substance: CYCLOPHOSPHAMIDE
     Indication: NON-HODGKIN^S LYMPHOMA
  13. SALINE [Concomitant]
     Active Substance: SODIUM CHLORIDE
     Route: 065
  14. ACYCLOVIR. [Concomitant]
     Active Substance: ACYCLOVIR
     Route: 065
  15. KETOPROFEN. [Concomitant]
     Active Substance: KETOPROFEN
     Route: 042
  16. DIPYRONE [Concomitant]
     Active Substance: DIPYRONE
     Dosage: AMPOULE OF 2 ML WITH 1000 MG
     Route: 065
  17. LACTULOSE. [Concomitant]
     Active Substance: LACTULOSE
     Dosage: BOTTLE OF 120 ML WITH 667 MG/ML
     Route: 065
  18. SIMETHICONE (DIMETHICONE) [Concomitant]
     Active Substance: DIMETHICONE
     Dosage: BOTTLE OF 15 ML WITH 2.5 MG/ DROP
     Route: 065
  19. DIMETHICONE. [Concomitant]
     Active Substance: DIMETHICONE
     Dosage: SUSPENSION JELLY (BOTTLE OF 240 MI)
     Route: 065
  20. VINCRISTINE SULFATE. [Concomitant]
     Active Substance: VINCRISTINE SULFATE
     Indication: NON-HODGKIN^S LYMPHOMA
  21. DEXCHLORPHENIRAMINE MALEATE. [Concomitant]
     Active Substance: DEXCHLORPHENIRAMINE MALEATE
     Route: 065
  22. ENOXAPARIN [Concomitant]
     Active Substance: ENOXAPARIN
     Dosage: 40 MG INJECTION PRE FILLED SYRINGE WITH 0.4 ML
     Route: 065
  23. SCOPOLAMINE [Concomitant]
     Active Substance: SCOPOLAMINE
     Dosage: AMPOULE 1 ML WITH 20 MG
     Route: 065
  24. SULFAMETHOXAZOLE/TRIMETHOPRIM [Concomitant]
     Active Substance: SULFAMETHOXAZOLE\TRIMETHOPRIM
     Route: 065
  25. ADRIAMYCIN [Concomitant]
     Active Substance: DOXORUBICIN HYDROCHLORIDE
     Indication: NON-HODGKIN^S LYMPHOMA
  26. ALLOPURINOL. [Concomitant]
     Active Substance: ALLOPURINOL
     Route: 065

REACTIONS (4)
  - Hypertension [Recovered/Resolved]
  - Respiratory disorder [Recovered/Resolved]
  - Acute pulmonary oedema [Recovered/Resolved]
  - Blood pressure fluctuation [Recovered/Resolved]

NARRATIVE: CASE EVENT DATE: 20160517
